FAERS Safety Report 8567303-0 (Version None)
Quarter: 2012Q3

REPORT INFORMATION
  Report Type: 
  Country: None (occurrence: None)
  Receive Date: 20120803
  Receipt Date: 20110825
  Transmission Date: 20120928
  Serious: No
  Sender: FDA-Public Use
  Company Number: US-ABBOTT-11P-163-0849385-00

PATIENT
  Sex: Female
  Weight: 58.566 kg

DRUGS (5)
  1. COSAMINE DS [Concomitant]
     Indication: ARTHRALGIA
  2. HORMONES [Concomitant]
     Indication: PRODUCT USED FOR UNKNOWN INDICATION
  3. ASPIRIN [Concomitant]
     Indication: PRODUCT USED FOR UNKNOWN INDICATION
  4. CRESTOR [Concomitant]
     Indication: PRODUCT USED FOR UNKNOWN INDICATION
  5. NIASPAN [Suspect]
     Indication: PRODUCT USED FOR UNKNOWN INDICATION
     Dosage: 1000 MG DAILY
     Dates: start: 20100801

REACTIONS (3)
  - FLUSHING [None]
  - LIMB DISCOMFORT [None]
  - PAIN IN EXTREMITY [None]
